FAERS Safety Report 22088495 (Version 1)
Quarter: 2023Q1

REPORT INFORMATION
  Report Type: Other
  Country: GB (occurrence: GB)
  Receive Date: 20230313
  Receipt Date: 20230313
  Transmission Date: 20230417
  Serious: Yes (Other)
  Sender: FDA-Public Use
  Company Number: None

PATIENT
  Age: 26 Year
  Sex: Male
  Weight: 78 kg

DRUGS (1)
  1. EMTRICITABINE\TENOFOVIR DISOPROXIL PHOSPHATE [Suspect]
     Active Substance: EMTRICITABINE\TENOFOVIR DISOPROXIL PHOSPHATE
     Indication: Prophylaxis against HIV infection
     Dosage: UNK (EVENT BASED. NEVER REALLY STARTED (NO LONGER HAVE THE MEDICATION))
     Route: 065

REACTIONS (1)
  - Pruritus [Recovering/Resolving]

NARRATIVE: CASE EVENT DATE: 20230128
